FAERS Safety Report 9278123 (Version 2)
Quarter: 2013Q1

REPORT INFORMATION
  Report Type: Spontaneous
  Country: US (occurrence: None)
  Receive Date: 20121210
  Receipt Date: 20130206
  Transmission Date: 20140127
  Serious: Yes (Other)
  Sender: FDA-Public Use
  Company Number: AMAG201203145

PATIENT
  Age: 85 Year
  Sex: Male
  Weight: 91 kg

DRUGS (12)
  1. FERAHEME [Suspect]
     Indication: IRON DEFICIENCY ANAEMIA
     Route: 042
     Dates: start: 20120703, end: 20120730
  2. BENADRYL [Concomitant]
  3. BUPROPION [Concomitant]
  4. CHOLECALCIFEROL [Concomitant]
  5. CYANOCOBALAMIN [Concomitant]
  6. DILTIAZEM [Concomitant]
  7. INOSITOL NICOTINATE [Concomitant]
  8. HUMULIN MIX [Concomitant]
  9. MAGNESIUM [Concomitant]
  10. ALTACE [Concomitant]
  11. FLOMAX (MORNIFLUMATE) [Concomitant]
  12. FOLIC ACID [Concomitant]

REACTIONS (15)
  - Drug hypersensitivity [None]
  - Hypotension [None]
  - Unresponsive to stimuli [None]
  - Syncope [None]
  - Oxygen saturation decreased [None]
  - Back pain [None]
  - Vomiting [None]
  - Nausea [None]
  - Feeling jittery [None]
  - Tremor [None]
  - Feeling cold [None]
  - Asthenia [None]
  - Blood pressure systolic increased [None]
  - Blood pressure diastolic decreased [None]
  - White blood cell count increased [None]
